FAERS Safety Report 5749709-8 (Version None)
Quarter: 2008Q2

REPORT INFORMATION
  Report Type: 
  Country: None (occurrence: None)
  Receive Date: 20080522
  Receipt Date: 20080522
  Transmission Date: 20081010
  Serious: Yes (Hospitalization)
  Sender: FDA-Public Use
  Company Number: None

PATIENT
  Sex: Female
  Weight: 80.45 kg

DRUGS (2)
  1. TRILEPTAL [Suspect]
     Indication: CONVULSION
     Dosage: 300MG AM DAILY PO
     Route: 048
     Dates: start: 20080327, end: 20080330
  2. OXCARBAZEPINE [Suspect]
     Indication: CONVULSION
     Dosage: 600MG HS DAILY PO
     Route: 048
     Dates: start: 20080328, end: 20080329

REACTIONS (4)
  - LIP SWELLING [None]
  - MALAISE [None]
  - TACHYCARDIA [None]
  - VISUAL DISTURBANCE [None]
